FAERS Safety Report 8135521-1 (Version None)
Quarter: 2012Q1

REPORT INFORMATION
  Report Type: 
  Country: None (occurrence: None)
  Receive Date: 20120214
  Receipt Date: 20120202
  Transmission Date: 20120608
  Serious: Yes (Hospitalization)
  Sender: FDA-Public Use
  Company Number: US-CELGENEUS-087-50794-12020580

PATIENT
  Sex: Male
  Weight: 48 kg

DRUGS (13)
  1. ENALAPRIL MALEATE [Concomitant]
     Route: 065
  2. NEUROTROPIN [Concomitant]
     Route: 065
  3. ZOLPIDEM [Concomitant]
     Route: 065
     Dates: start: 20110728, end: 20110812
  4. METHYCOBAL [Concomitant]
     Route: 065
  5. SULFAMETHOXAZOLE [Concomitant]
     Route: 065
     Dates: start: 20110722, end: 20110816
  6. LOCHOLEST [Concomitant]
     Route: 065
  7. VIDAZA [Suspect]
     Indication: MYELODYSPLASTIC SYNDROME
     Dosage: 37.5 MILLIGRAM/SQ. METER
     Route: 041
     Dates: start: 20110719, end: 20110722
  8. ALLOPURINOL [Concomitant]
     Route: 065
  9. CARVEDILOL [Concomitant]
     Dosage: 2.5 MILLIGRAM
     Route: 048
  10. PURSENNID [Concomitant]
     Route: 065
     Dates: start: 20110726
  11. LASIX [Concomitant]
     Route: 065
  12. LANSOPRAZOLE [Concomitant]
     Route: 065
  13. OPALMON [Concomitant]
     Route: 065

REACTIONS (2)
  - ATRIAL FLUTTER [None]
  - INTERSTITIAL LUNG DISEASE [None]
